FAERS Safety Report 18060287 (Version 1)
Quarter: 2020Q3

REPORT INFORMATION
  Report Type: Spontaneous
  Country: US (occurrence: US)
  Receive Date: 20200723
  Receipt Date: 20200723
  Transmission Date: 20201103
  Serious: No
  Sender: FDA-Public Use
  Company Number: US-TEVA-2020-US-1805018

PATIENT
  Sex: Female
  Weight: 90.72 kg

DRUGS (1)
  1. TOLTERODINE ER [Suspect]
     Active Substance: TOLTERODINE
     Dosage: FORM OF ADMIN: EXTENDED RELEASE
     Route: 065
     Dates: start: 2020

REACTIONS (2)
  - Dry mouth [Unknown]
  - Drug ineffective [Unknown]

NARRATIVE: CASE EVENT DATE: 2020
